FAERS Safety Report 9754195 (Version 2)
Quarter: 2015Q1

REPORT INFORMATION
  Report Type: Spontaneous
  Country: US (occurrence: US)
  Receive Date: 20131213
  Receipt Date: 20150212
  Transmission Date: 20150721
  Serious: No
  Sender: FDA-Public Use
  Company Number: US-GLAXOSMITHKLINE-A1038905A

PATIENT

DRUGS (2)
  1. NICORETTE [Suspect]
     Active Substance: NICOTINE
  2. CODEINE [Concomitant]
     Active Substance: CODEINE

REACTIONS (4)
  - Malaise [Unknown]
  - Overdose [Unknown]
  - Bone pain [Unknown]
  - Nausea [Unknown]
